FAERS Safety Report 10974605 (Version 1)
Quarter: 2015Q1

REPORT INFORMATION
  Report Type: Spontaneous
  Country: None (occurrence: None)
  Receive Date: 20150226
  Receipt Date: 20150226
  Transmission Date: 20150721
  Serious: No
  Sender: FDA-Public Use
  Company Number: TPA2010A00214

PATIENT
  Age: 61 Year
  Sex: Male
  Weight: 95.26 kg

DRUGS (4)
  1. ULORIC [Suspect]
     Active Substance: FEBUXOSTAT
     Indication: GOUT
     Dosage: 1 IN 1 D
     Route: 048
     Dates: start: 20091231
  2. LISINOPRIL. [Concomitant]
     Active Substance: LISINOPRIL
  3. ALIGN (ALL OTHER THERAPEUTIC PRODUCTS) [Concomitant]
  4. ACIPHEX [Concomitant]
     Active Substance: RABEPRAZOLE SODIUM

REACTIONS (2)
  - Gout [None]
  - Pollakiuria [None]

NARRATIVE: CASE EVENT DATE: 20100115
